FAERS Safety Report 9799023 (Version 2)
Quarter: 2014Q1

REPORT INFORMATION
  Report Type: Spontaneous
  Country: US (occurrence: US)
  Receive Date: 20140106
  Receipt Date: 20140106
  Transmission Date: 20141002
  Serious: No
  Sender: FDA-Public Use
  Company Number: US-GILEAD-2010-0032349

PATIENT
  Age: 74 Year
  Sex: Male
  Weight: 83.91 kg

DRUGS (10)
  1. LETAIRIS [Suspect]
     Indication: PULMONARY ARTERIAL HYPERTENSION
     Route: 048
     Dates: start: 20100930
  2. NORVASC [Concomitant]
  3. ATENOLOL [Concomitant]
  4. BENICAR [Concomitant]
  5. ASPIRIN [Concomitant]
  6. PRAVASTATIN [Concomitant]
  7. OMEPRAZOLE DR [Concomitant]
  8. ALLOPURINOL [Concomitant]
  9. VITAMIN D [Concomitant]
  10. FISH OIL [Concomitant]

REACTIONS (1)
  - Hypotension [Unknown]
